FAERS Safety Report 19856290 (Version 1)
Quarter: 2021Q3

REPORT INFORMATION
  Report Type: Spontaneous
  Country: NL (occurrence: NL)
  Receive Date: 20210920
  Receipt Date: 20210920
  Transmission Date: 20211014
  Serious: Yes (Other)
  Sender: FDA-Public Use
  Company Number: NL-TEVA-2021-NL-1952834

PATIENT
  Age: 58 Year
  Sex: Male
  Weight: 78 kg

DRUGS (7)
  1. EZETIMIB TABLET 10MG / BRAND NAME NOT SPECIFIED [Concomitant]
     Active Substance: EZETIMIBE
     Dosage: 10 MG , THERAPY START AND END DATE: ASKU
  2. CANDESARTAN TABLET 32MG / BRAND NAME NOT SPECIFIED [Concomitant]
     Dosage: 32 MG, THERAPY START AND END DATE: ASKU
  3. PANTOPRAZOL TABLET MSR 40MG / BRAND NAME NOT SPECIFIED [Suspect]
     Active Substance: PANTOPRAZOLE
     Indication: PROPHYLAXIS
     Dosage: 40 MILLIGRAM DAILY;
     Route: 065
     Dates: start: 201803, end: 20210623
  4. XARELTO [Concomitant]
     Active Substance: RIVAROXABAN
     Dosage: 20 MG, THERAPY START AND END DATE: ASKU
  5. BISOPROLOL TABLET   2,5MG / BRAND NAME NOT SPECIFIED [Concomitant]
     Active Substance: BISOPROLOL
     Dosage: 2,5 MG, THERAPY START AND END DATE: ASKU
  6. EPLERENON TABLET 25MG / BRAND NAME NOT SPECIFIED [Concomitant]
     Dosage: 25 MG, THERAPY START AND END DATE: ASKU
  7. ROSUVASTATINE TABLET 20MG / BRAND NAME NOT SPECIFIED [Concomitant]
     Dosage: 20 MG, THERAPY START AND END DATE: ASKU

REACTIONS (12)
  - Decreased appetite [Recovering/Resolving]
  - Ageusia [Recovering/Resolving]
  - Weight decreased [Recovered/Resolved]
  - Pruritus [Recovering/Resolving]
  - Anosmia [Recovering/Resolving]
  - Neuropathy peripheral [Recovering/Resolving]
  - Dizziness [Recovering/Resolving]
  - Myalgia [Recovering/Resolving]
  - Abnormal faeces [Recovered/Resolved]
  - Rash papular [Recovering/Resolving]
  - Muscle spasms [Recovering/Resolving]
  - Asthenia [Recovering/Resolving]

NARRATIVE: CASE EVENT DATE: 20180401
